FAERS Safety Report 24314785 (Version 2)
Quarter: 2024Q4

REPORT INFORMATION
  Report Type: Spontaneous
  Country: US (occurrence: US)
  Receive Date: 20240913
  Receipt Date: 20241125
  Transmission Date: 20250114
  Serious: No
  Sender: ALEXION PHARMACEUTICALS
  Company Number: 2024A206659

PATIENT
  Age: 74 Year
  Weight: 76.65 kg

DRUGS (1)
  1. BYDUREON BCISE [Suspect]
     Active Substance: EXENATIDE
     Indication: Diabetes mellitus
     Dosage: 2 MILLIGRAM, QW
     Route: 065

REACTIONS (6)
  - Injection site pain [Unknown]
  - Device delivery system issue [Unknown]
  - Device use issue [Unknown]
  - Incorrect dose administered [Unknown]
  - Drug dose omission by device [Recovered/Resolved]
  - Device leakage [Recovered/Resolved]
